APPROVED DRUG PRODUCT: IWILFIN
Active Ingredient: EFLORNITHINE HYDROCHLORIDE
Strength: EQ 192MG BASE
Dosage Form/Route: TABLET;ORAL
Application: N215500 | Product #001
Applicant: USWM LLC
Approved: Dec 13, 2023 | RLD: Yes | RS: Yes | Type: RX

EXCLUSIVITY:
Code: NP | Date: Dec 13, 2026
Code: ODE-462 | Date: Dec 13, 2030